FAERS Safety Report 23214157 (Version 7)
Quarter: 2025Q4

REPORT INFORMATION
  Report Type: Spontaneous
  Country: US (occurrence: US)
  Receive Date: 20231121
  Receipt Date: 20251023
  Transmission Date: 20260117
  Serious: Yes (Other)
  Sender: PFIZER
  Company Number: US-PFIZER INC-PV202300172386

PATIENT
  Age: 73 Year
  Sex: Female

DRUGS (6)
  1. BRAFTOVI [Suspect]
     Active Substance: ENCORAFENIB
     Dosage: UNK
  2. BRAFTOVI [Suspect]
     Active Substance: ENCORAFENIB
     Dosage: 375 MG, DAILY (5 X 75 MG CAPSULE DAILY, TAKE WITH OR WITHOUT FOOD. AVOID GRAPEFRUIT)
  3. BRAFTOVI [Suspect]
     Active Substance: ENCORAFENIB
     Dosage: 225 MG, 1X/DAY (3 X 75 MG CAPSULE ONCE DAILY)
     Route: 048
  4. BRAFTOVI [Suspect]
     Active Substance: ENCORAFENIB
     Dosage: 75 MG
  5. BRAFTOVI [Suspect]
     Active Substance: ENCORAFENIB
     Dosage: 75MG TAKE 5 CAPSULES (375 MG) DAILY
     Route: 048
  6. MEKTOVI [Concomitant]
     Active Substance: BINIMETINIB
     Dosage: 15MG; X2 15MG TABLETS ORAL BID (TWICE A DAY)
     Route: 048

REACTIONS (5)
  - Addison^s disease [Unknown]
  - Vision blurred [Unknown]
  - Urinary tract infection [Unknown]
  - Brain fog [Unknown]
  - Off label use [Unknown]
